FAERS Safety Report 8773492 (Version 3)
Quarter: 2012Q4

REPORT INFORMATION
  Report Type: 
  Country: US (occurrence: US)
  Receive Date: 20120907
  Receipt Date: 20120927
  Transmission Date: 20130627
  Serious: Yes (Death)
  Sender: FDA-Public Use
  Company Number: US-PURDUE-USA-2012-0092201

PATIENT
  Age: 64 Year
  Sex: Male
  Weight: 83.45 kg

DRUGS (3)
  1. ZOLPIDEM TARTRATE [Suspect]
     Indication: INTENTIONAL OVERDOSE
     Route: 065
  2. DIPHENHYDRAMINE [Suspect]
     Indication: INTENTIONAL OVERDOSE
     Route: 065
  3. ETHANOL [Suspect]
     Indication: INTENTIONAL OVERDOSE
     Route: 065

REACTIONS (1)
  - Intentional overdose [Fatal]
